FAERS Safety Report 24742057 (Version 2)
Quarter: 2025Q3

REPORT INFORMATION
  Report Type: Report from Study
  Country: IN (occurrence: IN)
  Receive Date: 20241217
  Receipt Date: 20250809
  Transmission Date: 20251021
  Serious: Yes (Hospitalization, Other)
  Sender: ALEXION PHARMACEUTICALS
  Company Number: IN-AstraZeneca-CH-00763947A

PATIENT
  Sex: Male

DRUGS (1)
  1. DURVALUMAB [Suspect]
     Active Substance: DURVALUMAB
     Indication: Biliary tract disorder

REACTIONS (6)
  - Pyrexia [Unknown]
  - Asthenia [Unknown]
  - Vomiting [Unknown]
  - Jaundice [Unknown]
  - Abdominal pain upper [Unknown]
  - Loss of consciousness [Unknown]
